FAERS Safety Report 17353213 (Version 2)
Quarter: 2020Q1

REPORT INFORMATION
  Report Type: Report from Study
  Country: US (occurrence: US)
  Receive Date: 20200131
  Receipt Date: 20200207
  Transmission Date: 20200409
  Serious: Yes (Death, Hospitalization, Other)
  Sender: FDA-Public Use
  Company Number: US-ASTRAZENECA-2020SE14202

PATIENT
  Age: 25110 Day
  Sex: Male
  Weight: 58.5 kg

DRUGS (18)
  1. METOPROLOL TARTRATE. [Suspect]
     Active Substance: METOPROLOL TARTRATE
     Route: 065
  2. IMFINZI [Suspect]
     Active Substance: DURVALUMAB
     Indication: LUNG NEOPLASM MALIGNANT
     Dosage: 580 MG
     Route: 042
     Dates: start: 20191219
  3. CIPROFLAXIN [Concomitant]
     Active Substance: CIPROFLOXACIN
  4. IMFINZI [Suspect]
     Active Substance: DURVALUMAB
     Indication: NEOPLASM MALIGNANT
     Dosage: 580 MG
     Route: 042
     Dates: start: 20191219
  5. LOVENOX [Concomitant]
     Active Substance: ENOXAPARIN SODIUM
  6. METHYLPREDNISOLONE. [Concomitant]
     Active Substance: METHYLPREDNISOLONE
  7. IMFINZI [Suspect]
     Active Substance: DURVALUMAB
     Indication: NEOPLASM MALIGNANT
     Dosage: PATIENT TOOK IMFINZI 500 MG AND 120 MG. PATIENT TOOK 620 MG EVERY 14 DAYS.
     Route: 042
     Dates: start: 20191205
  8. POTASSIUM [Concomitant]
     Active Substance: POTASSIUM
  9. PANTOPRAZOLE [Concomitant]
     Active Substance: PANTOPRAZOLE
  10. ZOFRAN [Concomitant]
     Active Substance: ONDANSETRON HYDROCHLORIDE
  11. COMPAZINE [Concomitant]
     Active Substance: PROCHLORPERAZINE MALEATE
  12. OXYCODONE [Concomitant]
     Active Substance: OXYCODONE
  13. GABAPENTIN. [Concomitant]
     Active Substance: GABAPENTIN
  14. IMFINZI [Suspect]
     Active Substance: DURVALUMAB
     Indication: NEOPLASM MALIGNANT
     Dosage: PATIENT TOOK IMFINZI 500 MG AND 120 MG. PATIENT TOOK 620 MG EVERY 14 DAYS.
     Route: 042
     Dates: start: 20191107
  15. IMFINZI [Suspect]
     Active Substance: DURVALUMAB
     Indication: LUNG NEOPLASM MALIGNANT
     Dosage: PATIENT TOOK IMFINZI 500 MG AND 120 MG. PATIENT TOOK 620 MG EVERY 14 DAYS.
     Route: 042
     Dates: start: 20191107
  16. IMFINZI [Suspect]
     Active Substance: DURVALUMAB
     Indication: LUNG NEOPLASM MALIGNANT
     Dosage: PATIENT TOOK IMFINZI 500 MG AND 120 MG. PATIENT TOOK 620 MG EVERY 14 DAYS.
     Route: 042
     Dates: start: 20191205
  17. PREDNISONE. [Concomitant]
     Active Substance: PREDNISONE
  18. WARFARIN [Concomitant]
     Active Substance: WARFARIN

REACTIONS (7)
  - Pneumonia [Unknown]
  - Lung cancer metastatic [Unknown]
  - Compression fracture [Unknown]
  - Death [Fatal]
  - Back pain [Unknown]
  - Deep vein thrombosis [Unknown]
  - Chronic obstructive pulmonary disease [Unknown]

NARRATIVE: CASE EVENT DATE: 20200114
